FAERS Safety Report 13243275 (Version 2)
Quarter: 2018Q1

REPORT INFORMATION
  Report Type: Spontaneous
  Country: US (occurrence: US)
  Receive Date: 20170217
  Receipt Date: 20180323
  Transmission Date: 20180508
  Serious: No
  Sender: FDA-Public Use
  Company Number: US-WEST-WARD PHARMACEUTICALS CORP.-US-H14001-16-02466

PATIENT
  Sex: Female

DRUGS (1)
  1. FLUTICASONE. [Suspect]
     Active Substance: FLUTICASONE
     Indication: PRODUCT USED FOR UNKNOWN INDICATION
     Route: 065

REACTIONS (7)
  - Flatulence [Unknown]
  - Thinking abnormal [Unknown]
  - Disorientation [Unknown]
  - Peripheral swelling [Unknown]
  - Eye swelling [Unknown]
  - Malaise [Unknown]
  - Abdominal pain upper [Unknown]
